FAERS Safety Report 21810849 (Version 1)
Quarter: 2022Q4

REPORT INFORMATION
  Report Type: Spontaneous
  Country: US (occurrence: None)
  Receive Date: 20221231
  Receipt Date: 20221231
  Transmission Date: 20230112
  Serious: Yes (Hospitalization)
  Sender: FDA-Public Use
  Company Number: None

PATIENT
  Age: 62 Year
  Sex: Female
  Weight: 92.12 kg

DRUGS (11)
  1. CAPECITABINE [Suspect]
     Active Substance: CAPECITABINE
     Indication: Colon cancer
     Dosage: 1500MG TWICE DAILY ORAL
     Route: 048
  2. DOXYCYCLINE [Concomitant]
  3. GABAPENTIN [Concomitant]
  4. IMODIUM MULTI-SYMPTOM RELIEF [Concomitant]
  5. ISOSORBIDE MONITRATE [Concomitant]
  6. LISINOPRIL [Concomitant]
  7. METFORMIN [Concomitant]
  8. NIFEDIPINE [Concomitant]
  9. PROCHLORPERAZINE [Concomitant]
  10. VITAMIN D3 [Concomitant]
  11. ZOFRAN [Concomitant]

REACTIONS (1)
  - Pneumonia [None]
